FAERS Safety Report 15538183 (Version 1)
Quarter: 2018Q4

REPORT INFORMATION
  Report Type: Spontaneous
  Country: MA (occurrence: MA)
  Receive Date: 20181022
  Receipt Date: 20181022
  Transmission Date: 20190205
  Serious: Yes (Other)
  Sender: FDA-Public Use
  Company Number: MA-PFIZER INC-2018423399

PATIENT
  Sex: Female

DRUGS (1)
  1. ZITHROMAX [Suspect]
     Active Substance: AZITHROMYCIN DIHYDRATE
     Dosage: 2 DF (500 MG TABLETS, 2 SEPARATE TABLETS ON THE FIRST DAY)

REACTIONS (4)
  - Syncope [Unknown]
  - Wrong dose [Unknown]
  - Loss of consciousness [Unknown]
  - Intentional product misuse [Unknown]
